FAERS Safety Report 7834120-6 (Version None)
Quarter: 2011Q4

REPORT INFORMATION
  Report Type: 
  Country: None (occurrence: None)
  Receive Date: 20111024
  Receipt Date: 20111011
  Transmission Date: 20120403
  Serious: Yes (Hospitalization)
  Sender: FDA-Public Use
  Company Number: PHHO2011SE17441

PATIENT
  Sex: Female

DRUGS (1)
  1. LETROZOLE [Suspect]
     Dosage: 2.5 MG, QD
     Route: 048
     Dates: start: 20090904

REACTIONS (1)
  - UROSEPSIS [None]
